FAERS Safety Report 7426334-4 (Version None)
Quarter: 2011Q2

REPORT INFORMATION
  Report Type: 
  Country: None (occurrence: None)
  Receive Date: 20110420
  Receipt Date: 20110412
  Transmission Date: 20111010
  Serious: Yes (Other)
  Sender: FDA-Public Use
  Company Number: B0713268A

PATIENT
  Sex: Female
  Weight: 54 kg

DRUGS (10)
  1. CRAVIT [Concomitant]
     Dosage: 300MG PER DAY
     Route: 048
     Dates: start: 20090205, end: 20110318
  2. FLUDARA [Suspect]
     Indication: STEM CELL TRANSPLANT
     Dosage: 25MGM2 PER DAY
     Route: 042
     Dates: start: 20090206, end: 20090210
  3. OMEPRAL [Concomitant]
     Dosage: 20MG PER DAY
     Route: 048
     Dates: start: 20090205, end: 20100704
  4. FLUCONAZOLE [Concomitant]
     Dosage: 200MG PER DAY
     Route: 048
     Dates: start: 20090205, end: 20100704
  5. DAIPHEN [Concomitant]
     Dosage: 1IUAX PER DAY
     Route: 048
     Dates: start: 20090205, end: 20090211
  6. ALKERAN [Suspect]
     Indication: STEM CELL TRANSPLANT
     Dosage: 50MGM2 PER DAY
     Route: 042
     Dates: start: 20090209, end: 20090210
  7. TACROLIMUS HYDRATE [Concomitant]
     Indication: IMMUNOSUPPRESSION
     Dosage: 5MG PER DAY
     Route: 065
     Dates: start: 20090212, end: 20100523
  8. URSO 250 [Concomitant]
     Dosage: 600MG PER DAY
     Route: 048
     Dates: start: 20090205, end: 20110303
  9. GAMIMUNE N 5% [Concomitant]
     Dosage: 100ML PER DAY
     Route: 042
     Dates: start: 20090209, end: 20090211
  10. ZOVIRAX [Concomitant]
     Dosage: 1000MG PER DAY
     Route: 048
     Dates: start: 20090205, end: 20100318

REACTIONS (1)
  - FEBRILE NEUTROPENIA [None]
